FAERS Safety Report 18950635 (Version 1)
Quarter: 2021Q1

REPORT INFORMATION
  Report Type: Spontaneous
  Country: US (occurrence: US)
  Receive Date: 20210228
  Receipt Date: 20210228
  Transmission Date: 20210420
  Serious: No
  Sender: FDA-Public Use
  Company Number: US-ROCHE-2678095

PATIENT
  Sex: Male

DRUGS (1)
  1. XOLAIR [Suspect]
     Active Substance: OMALIZUMAB
     Indication: ASTHMA
     Dosage: INJECT 150 MG SUBCUTANEOUSLY EVERY 4 WEEKS INCLUDE SUPPLY KIT
     Route: 058

REACTIONS (1)
  - Rash [Not Recovered/Not Resolved]
